FAERS Safety Report 23426402 (Version 2)
Quarter: 2024Q3

REPORT INFORMATION
  Report Type: Spontaneous
  Country: US (occurrence: US)
  Receive Date: 20240122
  Receipt Date: 20240718
  Transmission Date: 20241016
  Serious: Yes (Other)
  Sender: BRISTOL MYERS SQUIBB
  Company Number: US-BRISTOL-MYERS SQUIBB COMPANY-2024-006498

PATIENT
  Age: 74 Year
  Sex: Male

DRUGS (3)
  1. LENALIDOMIDE [Suspect]
     Active Substance: LENALIDOMIDE
     Indication: Anticoagulant therapy
     Dosage: FREQUENCY: TAKE 1 CAPSULE BY MOUTH EVERY DAY FOR 14 DAYS FOLLOWED BY 14 DAYS OFF
     Route: 048
     Dates: start: 20221115
  2. LENALIDOMIDE [Suspect]
     Active Substance: LENALIDOMIDE
     Indication: Plasma cell myeloma
     Dosage: FREQUENCY: TAKE 1 CAPSULE BY MOUTH EVERY DAY FOR 14 DAYS FOLLOWED BY 14 DAYS OFF
     Route: 048
     Dates: start: 20221115
  3. UNSPECIFIED INGREDIENT [Concomitant]
     Active Substance: UNSPECIFIED INGREDIENT
     Indication: Product used for unknown indication

REACTIONS (8)
  - Lethargy [Unknown]
  - Dyspnoea [Unknown]
  - Constipation [Not Recovered/Not Resolved]
  - Cancer pain [Unknown]
  - Fatigue [Not Recovered/Not Resolved]
  - Product distribution issue [Unknown]
  - Neuropathy peripheral [Not Recovered/Not Resolved]
  - Off label use [Unknown]
